FAERS Safety Report 25670622 (Version 3)
Quarter: 2025Q4

REPORT INFORMATION
  Report Type: Spontaneous
  Country: US (occurrence: US)
  Receive Date: 20250812
  Receipt Date: 20251014
  Transmission Date: 20260118
  Serious: Yes (Other)
  Sender: VERTEX
  Company Number: US-VERTEX PHARMACEUTICALS DOOEL SKOPJE-2025-013045

PATIENT

DRUGS (2)
  1. TRIKAFTA [Suspect]
     Active Substance: ELEXACAFTOR\IVACAFTOR\TEZACAFTOR
     Indication: Cystic fibrosis
     Dosage: YELLOW TABLETS IN MORNING AND BLUE TABLET IN EVENING
     Route: 048
  2. TRIKAFTA [Suspect]
     Active Substance: ELEXACAFTOR\IVACAFTOR\TEZACAFTOR
     Dosage: BLUE TAB IN AM AND YELLOWS IN EVENING
     Route: 048

REACTIONS (4)
  - Sinus disorder [Unknown]
  - Postprandial hypoglycaemia [Recovering/Resolving]
  - Insomnia [Recovering/Resolving]
  - Sinusitis [Not Recovered/Not Resolved]
